FAERS Safety Report 14058074 (Version 1)
Quarter: 2017Q4

REPORT INFORMATION
  Report Type: Spontaneous
  Country: US (occurrence: US)
  Receive Date: 20171006
  Receipt Date: 20171006
  Transmission Date: 20180321
  Serious: Yes (Other)
  Sender: FDA-Public Use
  Company Number: US-TARO-2017TAR00833

PATIENT
  Sex: Male

DRUGS (4)
  1. AMIODARONE HCL TABLET 200 MG [Suspect]
     Active Substance: AMIODARONE HYDROCHLORIDE
     Indication: UNEVALUABLE EVENT
     Dosage: UNK
  2. AMIODARONE (TEVA) [Suspect]
     Active Substance: AMIODARONE
     Indication: UNEVALUABLE EVENT
     Dosage: UNK
  3. AMIODARONE (MAYNE OR LIBERTAS) [Suspect]
     Active Substance: AMIODARONE
     Indication: UNEVALUABLE EVENT
  4. AMIODARONE (SANDOZ) [Suspect]
     Active Substance: AMIODARONE
     Indication: UNEVALUABLE EVENT
     Dosage: UNK

REACTIONS (6)
  - Dysphonia [Unknown]
  - Visual impairment [Unknown]
  - Off label use [Recovered/Resolved]
  - Parkinson^s disease [Unknown]
  - Muscular weakness [Unknown]
  - Pulmonary toxicity [Unknown]
